FAERS Safety Report 14364139 (Version 1)
Quarter: 2018Q1

REPORT INFORMATION
  Report Type: Spontaneous
  Country: CN (occurrence: CN)
  Receive Date: 20180108
  Receipt Date: 20180108
  Transmission Date: 20180509
  Serious: Yes (Other)
  Sender: FDA-Public Use
  Company Number: CN-PFIZER INC-2018002978

PATIENT
  Age: 40 Year
  Sex: Male
  Weight: 75 kg

DRUGS (3)
  1. PHARMORUBICIN [Suspect]
     Active Substance: EPIRUBICIN
     Indication: HEPATIC CANCER
     Dosage: 50 MG, 1X/DAY
     Route: 013
     Dates: start: 20171114, end: 20171114
  2. OU SU [Suspect]
     Active Substance: IOHEXOL
     Indication: HEPATIC CANCER
     Dosage: 100 ML, 1X/DAY
     Route: 042
     Dates: start: 20171114, end: 20171114
  3. NUO XIN [Suspect]
     Active Substance: CISPLATIN
     Indication: HEPATIC CANCER
     Dosage: 60 MG, 1X/DAY
     Route: 013
     Dates: start: 20171114, end: 20171114

REACTIONS (2)
  - Cough [Recovering/Resolving]
  - Pyrexia [Recovering/Resolving]

NARRATIVE: CASE EVENT DATE: 20171114
